FAERS Safety Report 17662330 (Version 1)
Quarter: 2020Q2

REPORT INFORMATION
  Report Type: Spontaneous
  Country: US (occurrence: US)
  Receive Date: 20200413
  Receipt Date: 20200413
  Transmission Date: 20200713
  Serious: Yes (Hospitalization)
  Sender: FDA-Public Use
  Company Number: US-BECTON DICKINSON-2020BDN00104

PATIENT
  Age: 61 Year
  Sex: Male
  Weight: 93.42 kg

DRUGS (1)
  1. CHLORAPREP WITH TINT [Suspect]
     Active Substance: CHLORHEXIDINE GLUCONATE\ISOPROPYL ALCOHOL
     Indication: INFECTION PROPHYLAXIS
     Dosage: UNK
     Route: 061
     Dates: start: 20200221, end: 20200221

REACTIONS (8)
  - Application site rash [Recovered/Resolved]
  - Erythema [Unknown]
  - White blood cell count increased [Unknown]
  - Urticaria [Unknown]
  - Incision site discharge [Unknown]
  - Application site irritation [Recovered/Resolved]
  - Skin exfoliation [Not Recovered/Not Resolved]
  - Rash [Recovered/Resolved]

NARRATIVE: CASE EVENT DATE: 2020
